FAERS Safety Report 7903108-9 (Version None)
Quarter: 2011Q4

REPORT INFORMATION
  Report Type: 
  Country: None (occurrence: None)
  Receive Date: 20111107
  Receipt Date: 20111025
  Transmission Date: 20120403
  Serious: Yes (Other)
  Sender: FDA-Public Use
  Company Number: B0760423A

PATIENT
  Age: 31 Year
  Sex: Female

DRUGS (6)
  1. STAVUDINE [Suspect]
  2. ZIDOVUDINE [Suspect]
     Indication: HIV INFECTION
  3. FLUOXETINE HCL [Concomitant]
  4. LAMIVUDINE (EPIVIR HBV) [Suspect]
     Indication: HIV INFECTION
  5. NEVIRAPINE [Suspect]
     Indication: HIV INFECTION
     Dosage: 200 MG / TWICE PER DAY /
  6. KETOCONAZOLE [Concomitant]

REACTIONS (4)
  - LIPOATROPHY [None]
  - MUSCLE ATROPHY [None]
  - WEIGHT INCREASED [None]
  - ANAEMIA [None]
